FAERS Safety Report 7147956 (Version 2)
Quarter: 2013Q3

REPORT INFORMATION
  Report Type: Spontaneous
  Country: None (occurrence: None)
  Receive Date: 20090928
  Receipt Date: 20130709
  Transmission Date: 20140515
  Serious: Yes (Other)
  Sender: FDA-Public Use
  Company Number: AUR-APU-2009-00722

PATIENT
  Age: 45 Year
  Sex: Female

DRUGS (3)
  1. LAMOTRIGINE [Suspect]
     Indication: DEPRESSION
  2. TOPIRAMATE (TOPIRAMATE) [Concomitant]
  3. BUPROPION [Concomitant]

REACTIONS (6)
  - Rash generalised [None]
  - Raynaud^s phenomenon [None]
  - Arthralgia [None]
  - Malaise [None]
  - Livedo reticularis [None]
  - Sjogren^s syndrome [None]
